FAERS Safety Report 7424201-3 (Version None)
Quarter: 2011Q2

REPORT INFORMATION
  Report Type: 
  Country: None (occurrence: None)
  Receive Date: 20110419
  Receipt Date: 20110323
  Transmission Date: 20111010
  Serious: No
  Sender: FDA-Public Use
  Company Number: US-B.I. PHARMACEUTICALS,INC./RIDGEFIELD-2011-BP-09003BP

PATIENT
  Age: 69 Year
  Sex: Female

DRUGS (7)
  1. PRADAXA [Suspect]
     Indication: ATRIAL FIBRILLATION
     Dosage: 300 MG
     Route: 048
     Dates: start: 20110318
  2. IMODIUM [Concomitant]
     Indication: DIVERTICULITIS
  3. CLARINEX [Concomitant]
     Indication: HYPERSENSITIVITY
  4. IMODIUM [Concomitant]
     Indication: COLITIS
  5. FLECAINIDE ACETATE [Concomitant]
  6. BENAZEPRIL HYDROCHLORIDE [Concomitant]
     Indication: HYPERTENSION
  7. B-12 NASAL SPRAY [Concomitant]
     Indication: HYPERSENSITIVITY

REACTIONS (3)
  - JOINT SWELLING [None]
  - MUSCULOSKELETAL PAIN [None]
  - DIARRHOEA [None]
